FAERS Safety Report 15325896 (Version 2)
Quarter: 2018Q3

REPORT INFORMATION
  Report Type: Spontaneous
  Country: US (occurrence: US)
  Receive Date: 20180828
  Receipt Date: 20180919
  Transmission Date: 20181010
  Serious: Yes (Other)
  Sender: FDA-Public Use
  Company Number: US-PFIZER INC-2018343840

PATIENT
  Sex: Male

DRUGS (1)
  1. GABAPENTIN. [Suspect]
     Active Substance: GABAPENTIN
     Dosage: 300 MG, UNK

REACTIONS (9)
  - Dysphemia [Unknown]
  - Energy increased [Unknown]
  - Fear [Unknown]
  - Suicidal ideation [Unknown]
  - Depression [Unknown]
  - Thinking abnormal [Unknown]
  - Dizziness [Unknown]
  - Nervousness [Unknown]
  - Drug intolerance [Unknown]
